FAERS Safety Report 23884375 (Version 2)
Quarter: 2024Q4

REPORT INFORMATION
  Report Type: Spontaneous
  Country: US (occurrence: US)
  Receive Date: 20240522
  Receipt Date: 20241001
  Transmission Date: 20250115
  Serious: No
  Sender: CATALYST PHARMA
  Company Number: US-CATALYST PHARMACEUTICALS-US-CATA-24-00339

PATIENT
  Sex: Male
  Weight: 23.356 kg

DRUGS (10)
  1. AGAMREE [Suspect]
     Active Substance: VAMOROLONE
     Indication: Duchenne muscular dystrophy
     Dosage: 1.2ML DAILY
     Route: 048
     Dates: start: 20240417, end: 2024
  2. ROBINUL [Concomitant]
     Active Substance: GLYCOPYRROLATE
     Indication: Secretion discharge
     Dosage: 2 MILLIGRAM, BID
     Route: 065
  3. ROBINUL [Concomitant]
     Active Substance: GLYCOPYRROLATE
     Dosage: 1MG 2 X DAY
     Route: 065
  4. OXCARBAZEPINE [Concomitant]
     Active Substance: OXCARBAZEPINE
     Indication: Hydrocephalus
     Dosage: 300MG TABLET 2 X DAY
     Route: 065
  5. ONFI [Concomitant]
     Active Substance: CLOBAZAM
     Indication: Hydrocephalus
     Dosage: 20MG 2 X DAY
     Route: 065
  6. KEPPRA [Concomitant]
     Active Substance: LEVETIRACETAM
     Indication: Hydrocephalus
     Dosage: 750MG 2 X DAY
     Route: 065
  7. GABAPENTIN [Concomitant]
     Active Substance: GABAPENTIN
     Indication: Hydrocephalus
     Dosage: 100MG 2 X DAY
     Route: 065
  8. VITAMINS [Concomitant]
     Active Substance: VITAMINS
     Indication: Hypovitaminosis
     Dosage: DAILY
     Route: 065
  9. VITAMIN D3 [Concomitant]
     Active Substance: CHOLECALCIFEROL
     Indication: Hypovitaminosis
     Dosage: 25MCG DAILY
     Route: 065
  10. DIASTAT [Concomitant]
     Active Substance: DIAZEPAM
     Indication: Seizure
     Dosage: AS NEEDED
     Route: 065

REACTIONS (1)
  - Hypersomnia [Not Recovered/Not Resolved]

NARRATIVE: CASE EVENT DATE: 20240101
